FAERS Safety Report 17559728 (Version 1)
Quarter: 2020Q1

REPORT INFORMATION
  Report Type: Spontaneous
  Country: US (occurrence: US)
  Receive Date: 20200319
  Receipt Date: 20200319
  Transmission Date: 20200409
  Serious: No
  Sender: FDA-Public Use
  Company Number: US-SA-2020SA068462

PATIENT
  Age: 79 Year
  Sex: Female

DRUGS (1)
  1. MULTAQ [Suspect]
     Active Substance: DRONEDARONE
     Indication: ATRIAL FIBRILLATION
     Dosage: 400 MG, BID (TWICE PER DAY)
     Route: 065
     Dates: start: 20200305

REACTIONS (2)
  - Dyspnoea [Unknown]
  - Chromaturia [Unknown]
